APPROVED DRUG PRODUCT: RIMIFON
Active Ingredient: ISONIAZID
Strength: 25MG/ML
Dosage Form/Route: INJECTABLE;INJECTION
Application: N008420 | Product #002
Applicant: HOFFMANN LA ROCHE INC
Approved: Approved Prior to Jan 1, 1982 | RLD: No | RS: No | Type: DISCN